FAERS Safety Report 6508510-8 (Version None)
Quarter: 2009Q4

REPORT INFORMATION
  Report Type: 
  Country: None (occurrence: None)
  Receive Date: 20091221
  Receipt Date: 20081215
  Transmission Date: 20100525
  Serious: Yes (Disabling)
  Sender: FDA-Public Use
  Company Number: US-ASTRAZENECA-2008UW25709

PATIENT
  Age: 731 Month
  Sex: Female
  Weight: 76.7 kg

DRUGS (7)
  1. CRESTOR [Suspect]
     Indication: BLOOD CHOLESTEROL INCREASED
     Route: 048
     Dates: start: 20080101
  2. CRESTOR [Suspect]
     Dosage: 10MG THREE TIMES A WEEK
     Route: 048
     Dates: start: 20081117
  3. TRICOR [Concomitant]
     Indication: BLOOD TRIGLYCERIDES INCREASED
     Route: 048
  4. ATIVAN [Concomitant]
     Indication: SLEEP DISORDER
     Dosage: 2-4MG
     Dates: start: 19980801
  5. TOPROL-XL [Concomitant]
     Indication: SUPRAVENTRICULAR TACHYCARDIA
     Route: 048
  6. LOPID [Concomitant]
  7. BAYCHOL [Concomitant]

REACTIONS (1)
  - ARTHRALGIA [None]
